FAERS Safety Report 6786678-6 (Version None)
Quarter: 2010Q2

REPORT INFORMATION
  Report Type: 
  Country: None (occurrence: None)
  Receive Date: 20100623
  Receipt Date: 20100611
  Transmission Date: 20101027
  Serious: Yes (Other)
  Sender: FDA-Public Use
  Company Number: BR-PFIZER INC-2010073963

PATIENT
  Age: 67 Year
  Sex: Female

DRUGS (1)
  1. DETRUSITOL LA [Suspect]
     Dosage: 4 MG, 1X/DAY, 1 TABLET
     Route: 048
     Dates: start: 20090101

REACTIONS (2)
  - HYPERTONIC BLADDER [None]
  - URINARY INCONTINENCE [None]
